FAERS Safety Report 8036869-1 (Version None)
Quarter: 2012Q1

REPORT INFORMATION
  Report Type: 
  Country: None (occurrence: None)
  Receive Date: 20120111
  Receipt Date: 20120106
  Transmission Date: 20120608
  Serious: Yes (Other)
  Sender: FDA-Public Use
  Company Number: US-PFIZER INC-2012004918

PATIENT
  Sex: Male
  Weight: 76.644 kg

DRUGS (5)
  1. SPIRONOLACTONE [Concomitant]
     Indication: HYPERTENSION
     Dosage: UNK
  2. PROCHLORPERAZINE [Concomitant]
     Indication: NAUSEA
     Dosage: UNK
  3. LORAZEPAM [Concomitant]
     Indication: NAUSEA
     Dosage: UNK
  4. TORISEL [Suspect]
     Indication: RENAL CELL CARCINOMA
     Dosage: 25 MG, WEEKLY
     Route: 042
     Dates: start: 20110929
  5. AMLODIPINE [Concomitant]
     Indication: HYPERTENSION
     Dosage: UNK

REACTIONS (3)
  - WHITE BLOOD CELL COUNT DECREASED [None]
  - EXTRAVASATION [None]
  - NEUTROPHIL COUNT DECREASED [None]
